FAERS Safety Report 9218437 (Version 3)
Quarter: 2013Q3

REPORT INFORMATION
  Report Type: Spontaneous
  Country: US (occurrence: US)
  Receive Date: 20130409
  Receipt Date: 20130701
  Transmission Date: 20140515
  Serious: No
  Sender: FDA-Public Use
  Company Number: US-BIOGENIDEC-2013BI030434

PATIENT
  Sex: Male

DRUGS (1)
  1. TYSABRI [Suspect]
     Indication: MULTIPLE SCLEROSIS
     Route: 042
     Dates: start: 20120215

REACTIONS (10)
  - Frustration [Unknown]
  - Gait disturbance [Unknown]
  - Emotional distress [Unknown]
  - Memory impairment [Unknown]
  - Sensory disturbance [Unknown]
  - Mobility decreased [Unknown]
  - Asthenia [Unknown]
  - Malaise [Unknown]
  - Multiple sclerosis [Not Recovered/Not Resolved]
  - Drug ineffective [Unknown]
